FAERS Safety Report 12126179 (Version 2)
Quarter: 2016Q1

REPORT INFORMATION
  Report Type: Spontaneous
  Country: US (occurrence: US)
  Receive Date: 20160229
  Receipt Date: 20160229
  Transmission Date: 20160526
  Serious: No
  Sender: FDA-Public Use
  Company Number: US-ABBVIE-15P-163-1447476-00

PATIENT
  Age: 60 Year
  Sex: Male

DRUGS (2)
  1. ANDROGEL [Suspect]
     Active Substance: TESTOSTERONE
     Indication: HYPOTONIA
     Dosage: 2 PUMPS EVERY 3-4 DAYS
     Route: 061
     Dates: start: 201507
  2. ANDROGEL [Suspect]
     Active Substance: TESTOSTERONE
     Indication: HYPOTONIA
     Dosage: ONE (5GRM) PACKET EVERY 3-4 DAYS
     Route: 061

REACTIONS (3)
  - Drug administration error [Not Recovered/Not Resolved]
  - Off label use [Not Recovered/Not Resolved]
  - Aggression [Not Recovered/Not Resolved]
